FAERS Safety Report 9954872 (Version 2)
Quarter: 2014Q1

REPORT INFORMATION
  Report Type: Report from Study
  Country: US (occurrence: US)
  Receive Date: 20140304
  Receipt Date: 20140304
  Transmission Date: 20141002
  Serious: No
  Sender: FDA-Public Use
  Company Number: US-ABBVIE-13P-163-1072575-00

PATIENT
  Age: 63 Year
  Sex: Female

DRUGS (4)
  1. HUMIRA [Suspect]
     Indication: CROHN^S DISEASE
     Route: 058
     Dates: start: 201302
  2. LISINOPRIL [Concomitant]
     Indication: BLOOD PRESSURE
  3. VITAMINS [Concomitant]
     Indication: PRODUCT USED FOR UNKNOWN INDICATION
     Dosage: SUPPLEMENT
  4. ENSURE [Concomitant]
     Indication: PRODUCT USED FOR UNKNOWN INDICATION
     Dosage: SUPPLEMENT

REACTIONS (10)
  - Sneezing [Unknown]
  - Sinus operation [Not Recovered/Not Resolved]
  - Injection site swelling [Recovering/Resolving]
  - Crohn^s disease [Unknown]
  - Blood pressure increased [Unknown]
  - Headache [Unknown]
  - Lethargy [Unknown]
  - Heart rate decreased [Unknown]
  - Blood potassium decreased [Unknown]
  - Hypotension [Unknown]
